FAERS Safety Report 19147787 (Version 1)
Quarter: 2021Q2

REPORT INFORMATION
  Report Type: Spontaneous
  Country: CA (occurrence: CA)
  Receive Date: 20210416
  Receipt Date: 20210416
  Transmission Date: 20210717
  Serious: Yes (Hospitalization, Other)
  Sender: FDA-Public Use
  Company Number: CA-TEVA-2021-CA-1900597

PATIENT
  Age: 44 Year
  Sex: Male

DRUGS (36)
  1. DULOXETINE HYDROCHLORIDE. [Interacting]
     Active Substance: DULOXETINE HYDROCHLORIDE
     Indication: PAIN
     Route: 065
  2. DULOXETINE HYDROCHLORIDE. [Interacting]
     Active Substance: DULOXETINE HYDROCHLORIDE
     Indication: NEURALGIA
  3. ZOPICLONE [Interacting]
     Active Substance: ZOPICLONE
     Indication: NEURALGIA
  4. KETAMINE (UNKNOWN) [Interacting]
     Active Substance: KETAMINE
     Dosage: 38.4 MG/KG DAILY;
     Route: 042
  5. MAGNESIUM SULFATE. [Concomitant]
     Active Substance: MAGNESIUM SULFATE
     Indication: ANALGESIC THERAPY
     Route: 065
  6. DEXAMETHASONE. [Concomitant]
     Active Substance: DEXAMETHASONE
     Route: 042
  7. CANNABIDIOL [Interacting]
     Active Substance: CANNABIDIOL
     Indication: NEURALGIA
  8. ONDANSETRON [Concomitant]
     Active Substance: ONDANSETRON
     Indication: PROPHYLAXIS
     Route: 042
  9. ONDANSETRON [Concomitant]
     Active Substance: ONDANSETRON
     Route: 042
  10. MIDAZOLAM (UNKNOWN) [Interacting]
     Active Substance: MIDAZOLAM HYDROCHLORIDE
     Indication: PRODUCT USED FOR UNKNOWN INDICATION
     Route: 042
  11. MAGNESIUM SULFATE. [Concomitant]
     Active Substance: MAGNESIUM SULFATE
     Route: 065
  12. LIDOCAINE. [Concomitant]
     Active Substance: LIDOCAINE
     Indication: ANALGESIC THERAPY
     Route: 065
  13. TEVA?DULOXETINE [Suspect]
     Active Substance: DULOXETINE
     Indication: PAIN
     Route: 065
  14. LIDOCAINE. [Interacting]
     Active Substance: LIDOCAINE
     Indication: ANALGESIC THERAPY
     Route: 065
  15. TEMAZEPAM. [Interacting]
     Active Substance: TEMAZEPAM
     Indication: PAIN
     Route: 065
  16. DEXAMETHASONE. [Concomitant]
     Active Substance: DEXAMETHASONE
     Indication: PROPHYLAXIS
     Route: 042
  17. MAGNESIUM SULFATE. [Interacting]
     Active Substance: MAGNESIUM SULFATE
     Indication: ANALGESIC THERAPY
     Route: 065
  18. DELTA(9)?TETRAHYDROCANNABINOLIC ACID [Interacting]
     Active Substance: DELTA(9)-TETRAHYDROCANNABINOLIC ACID
     Indication: NEURALGIA
     Route: 065
  19. MAGNESIUM SULFATE. [Concomitant]
     Active Substance: MAGNESIUM SULFATE
     Route: 040
  20. TEVA?DULOXETINE [Interacting]
     Active Substance: DULOXETINE
     Indication: NEURALGIA
  21. AMITRIPTYLINE [Interacting]
     Active Substance: AMITRIPTYLINE
     Indication: PAIN
     Route: 065
  22. AMITRIPTYLINE [Interacting]
     Active Substance: AMITRIPTYLINE
     Indication: NEURALGIA
  23. CANNABIDIOL [Interacting]
     Active Substance: CANNABIDIOL
     Indication: PAIN
     Route: 065
  24. ONDANSETRON [Interacting]
     Active Substance: ONDANSETRON
     Indication: PROPHYLAXIS
     Route: 042
  25. TEMAZEPAM. [Interacting]
     Active Substance: TEMAZEPAM
     Indication: NEURALGIA
  26. MAGNESIUM SULFATE. [Concomitant]
     Active Substance: MAGNESIUM SULFATE
     Route: 042
  27. KETAMINE (UNKNOWN) [Interacting]
     Active Substance: KETAMINE
     Indication: PAIN
     Route: 042
  28. KETAMINE (UNKNOWN) [Interacting]
     Active Substance: KETAMINE
     Dosage: 12 MG/KG DAILY;
     Route: 042
  29. DRONABINOL. [Interacting]
     Active Substance: DRONABINOL
     Route: 065
  30. LIDOCAINE. [Concomitant]
     Active Substance: LIDOCAINE
     Route: 065
  31. ZOPICLONE [Interacting]
     Active Substance: ZOPICLONE
     Indication: PAIN
     Route: 065
  32. DEXAMETHASONE. [Interacting]
     Active Substance: DEXAMETHASONE
     Indication: PROPHYLAXIS
     Route: 042
  33. KETAMINE (UNKNOWN) [Interacting]
     Active Substance: KETAMINE
     Indication: NEURALGIA
     Route: 042
  34. KETAMINE (UNKNOWN) [Interacting]
     Active Substance: KETAMINE
     Route: 040
  35. MIDAZOLAM (UNKNOWN) [Interacting]
     Active Substance: MIDAZOLAM HYDROCHLORIDE
     Indication: PROPHYLAXIS
     Route: 042
  36. DRONABINOL. [Interacting]
     Active Substance: DRONABINOL
     Indication: ANALGESIC THERAPY
     Route: 065

REACTIONS (10)
  - Drug level increased [Recovered/Resolved]
  - Agitation [Recovered/Resolved]
  - Aggression [Recovered/Resolved]
  - Disinhibition [Recovered/Resolved]
  - Hypersexuality [Recovered/Resolved]
  - Restlessness [Recovered/Resolved]
  - Psychotic disorder [Recovered/Resolved]
  - Behaviour disorder [Recovered/Resolved]
  - Confusional state [Recovered/Resolved]
  - Drug interaction [Recovered/Resolved]
